FAERS Safety Report 9224657 (Version 1)
Quarter: 2013Q1

REPORT INFORMATION
  Report Type: Spontaneous
  Country: US (occurrence: None)
  Receive Date: 20120912
  Receipt Date: 20120912
  Transmission Date: 20140127
  Serious: No
  Sender: FDA-Public Use
  Company Number: 2012SP027201

PATIENT
  Age: 25 Year
  Sex: Male

DRUGS (4)
  1. VICTRELIS 200 MG [Suspect]
     Indication: HEPATITIS C
     Dates: start: 201205
  2. PEGASYS [Suspect]
  3. RIBAPAK [Suspect]
  4. VENTOLIN [Concomitant]

REACTIONS (3)
  - Swelling face [None]
  - Eye swelling [None]
  - Nasal congestion [None]
